FAERS Safety Report 20580046 (Version 3)
Quarter: 2023Q1

REPORT INFORMATION
  Report Type: Other
  Country: IT (occurrence: None)
  Receive Date: 20220310
  Receipt Date: 20230317
  Transmission Date: 20230417
  Serious: No
  Sender: FDA-Public Use
  Company Number: IT-ROCHE-3043443

PATIENT
  Age: 32 Year
  Sex: Female
  Weight: 75 kg

DRUGS (21)
  1. OCRELIZUMAB [Suspect]
     Active Substance: OCRELIZUMAB
     Indication: Relapsing-remitting multiple sclerosis
     Dosage: SUBSEQUENT SAME DOSE: 14/FEB/2020 (LOT NUMBER: UNKNOWN)
     Route: 042
     Dates: start: 20200124
  2. OCRELIZUMAB [Suspect]
     Active Substance: OCRELIZUMAB
     Dosage: SUBSEQUENT SAME DOSE: 18-JAN-2021, 12-JUL-2021, 12-AUG-2022 (LOT NUMBER: H0060H11), 27-JAN-2023 (LOT
     Route: 042
     Dates: start: 20200727
  3. CISTIDIL [Concomitant]
     Indication: Adverse event
     Route: 048
     Dates: start: 20210403
  4. AZITHROMYCIN DIHYDRATE [Concomitant]
     Active Substance: AZITHROMYCIN DIHYDRATE
     Indication: Adverse event
     Route: 048
     Dates: start: 20211231, end: 20220105
  5. FLUIMUCIL [Concomitant]
     Active Substance: ACETYLCYSTEINE
     Indication: Adverse event
     Route: 048
     Dates: start: 20211231, end: 20220115
  6. IBUPROFEN [Concomitant]
     Active Substance: IBUPROFEN
     Indication: Adverse event
     Route: 048
     Dates: start: 20220102, end: 20220106
  7. DAFLON [Concomitant]
     Route: 048
     Dates: start: 20220118, end: 202204
  8. ACETAMINOPHEN [Concomitant]
     Active Substance: ACETAMINOPHEN
     Route: 048
     Dates: start: 20220218, end: 20220218
  9. ACETAMINOPHEN [Concomitant]
     Active Substance: ACETAMINOPHEN
     Route: 048
     Dates: start: 20220812, end: 20220812
  10. ACETAMINOPHEN [Concomitant]
     Active Substance: ACETAMINOPHEN
     Route: 048
     Dates: start: 20230127, end: 20230127
  11. OMEPRAZOLE [Concomitant]
     Active Substance: OMEPRAZOLE
     Route: 048
     Dates: start: 20220218, end: 20220218
  12. OMEPRAZOLE [Concomitant]
     Active Substance: OMEPRAZOLE
     Route: 048
     Dates: start: 20220812, end: 20220812
  13. OMEPRAZOLE [Concomitant]
     Active Substance: OMEPRAZOLE
     Route: 048
     Dates: start: 20230127, end: 20230127
  14. METHYLPREDNISOLONE [Concomitant]
     Active Substance: METHYLPREDNISOLONE
     Route: 042
     Dates: start: 20220218, end: 20220218
  15. METHYLPREDNISOLONE [Concomitant]
     Active Substance: METHYLPREDNISOLONE
     Route: 042
     Dates: start: 20220812, end: 20220812
  16. METHYLPREDNISOLONE [Concomitant]
     Active Substance: METHYLPREDNISOLONE
     Route: 042
     Dates: start: 20230127, end: 20230127
  17. TRIMETON IV [Concomitant]
     Route: 030
     Dates: start: 20220218, end: 20220218
  18. TRIMETON IV [Concomitant]
     Route: 030
     Dates: start: 20220812, end: 20220812
  19. TRIMETON IV [Concomitant]
     Route: 030
     Dates: start: 20230127, end: 20230127
  20. CETIRIZINE HYDROCHLORIDE [Concomitant]
     Active Substance: CETIRIZINE HYDROCHLORIDE
     Indication: Adverse event
     Route: 048
     Dates: start: 20220218, end: 20220218
  21. DEXAMETHASONE [Concomitant]
     Active Substance: DEXAMETHASONE
     Indication: Adverse event
     Route: 042
     Dates: start: 20220218, end: 20220218

REACTIONS (2)
  - COVID-19 [Recovered/Resolved]
  - Raynaud^s phenomenon [Recovering/Resolving]

NARRATIVE: CASE EVENT DATE: 20211201
